FAERS Safety Report 4375840-8 (Version None)
Quarter: 2004Q2

REPORT INFORMATION
  Report Type: 
  Country: None (occurrence: None)
  Receive Date: 20040609
  Receipt Date: 20040609
  Transmission Date: 20050107
  Serious: Yes (Hospitalization)
  Sender: FDA-Public Use
  Company Number: None

PATIENT
  Age: 48 Year
  Sex: Female
  Weight: 86.1834 kg

DRUGS (15)
  1. TAXOL [Suspect]
     Indication: LARYNGEAL CANCER
     Dosage: 195 MG IV Q WK
     Route: 042
     Dates: start: 20040405
  2. TAXOL [Suspect]
     Indication: LARYNGEAL CANCER
     Dosage: 195 MG IV Q WK
     Route: 042
     Dates: start: 20040412
  3. TAXOL [Suspect]
     Indication: LARYNGEAL CANCER
     Dosage: 195 MG IV Q WK
     Route: 042
     Dates: start: 20040419
  4. TAXOL [Suspect]
     Indication: LARYNGEAL CANCER
     Dosage: 195 MG IV Q WK
     Route: 042
     Dates: start: 20040426
  5. TAXOL [Suspect]
     Indication: LARYNGEAL CANCER
     Dosage: 195 MG IV Q WK
     Route: 042
     Dates: start: 20040510
  6. IFOSFAMIDE [Suspect]
     Indication: LARYNGEAL CANCER
     Dosage: 1,750 MG IV Q WK
     Route: 042
     Dates: start: 20040405
  7. IFOSFAMIDE [Suspect]
     Indication: LARYNGEAL CANCER
     Dosage: 1,750 MG IV Q WK
     Route: 042
     Dates: start: 20040412
  8. IFOSFAMIDE [Suspect]
     Indication: LARYNGEAL CANCER
     Dosage: 1,750 MG IV Q WK
     Route: 042
     Dates: start: 20040419
  9. IFOSFAMIDE [Suspect]
     Indication: LARYNGEAL CANCER
     Dosage: 1,750 MG IV Q WK
     Route: 042
     Dates: start: 20040426
  10. IFOSFAMIDE [Suspect]
     Indication: LARYNGEAL CANCER
     Dosage: 1,750 MG IV Q WK
     Route: 042
     Dates: start: 20040510
  11. CARBOPLATIN [Suspect]
     Indication: LARYNGEAL CANCER
     Dosage: 350 MG IV Q WK
     Route: 042
     Dates: start: 20040405
  12. CARBOPLATIN [Suspect]
     Indication: LARYNGEAL CANCER
     Dosage: 350 MG IV Q WK
     Route: 042
     Dates: start: 20040412
  13. CARBOPLATIN [Suspect]
     Indication: LARYNGEAL CANCER
     Dosage: 350 MG IV Q WK
     Route: 042
     Dates: start: 20040419
  14. CARBOPLATIN [Suspect]
     Indication: LARYNGEAL CANCER
     Dosage: 350 MG IV Q WK
     Route: 042
     Dates: start: 20040426
  15. CARBOPLATIN [Suspect]
     Indication: LARYNGEAL CANCER
     Dosage: 350 MG IV Q WK
     Route: 042
     Dates: start: 20040510

REACTIONS (2)
  - HAEMOGLOBIN DECREASED [None]
  - JUGULAR VEIN THROMBOSIS [None]
